FAERS Safety Report 14675315 (Version 2)
Quarter: 2018Q2

REPORT INFORMATION
  Report Type: Spontaneous
  Country: ZA (occurrence: ZA)
  Receive Date: 20180323
  Receipt Date: 20180425
  Transmission Date: 20180711
  Serious: Yes (Death, Hospitalization)
  Sender: FDA-Public Use
  Company Number: ZA-PFIZER INC-2018117504

PATIENT
  Age: 74 Year
  Sex: Female

DRUGS (9)
  1. URBANOL [Suspect]
     Active Substance: CLOBAZAM
     Dosage: 10 MG, UNK
  2. OLAWIN [Suspect]
     Active Substance: OLANZAPINE
     Dosage: 10 MG, UNK
  3. DISPRIN CARDIOCARE [Suspect]
     Active Substance: ASPIRIN
     Dosage: 100 MG, UNK
  4. METHOTREXATE SODIUM. [Suspect]
     Active Substance: METHOTREXATE SODIUM
     Dosage: 2.5 MG, UNK
  5. CYMGEN [Suspect]
     Active Substance: DULOXETINE HYDROCHLORIDE
     Dosage: 60 MG, UNK
  6. BETMIGA [Suspect]
     Active Substance: MIRABEGRON
     Dosage: 50 MG, UNK
  7. PEARINDA [Suspect]
     Active Substance: PERINDOPRIL ERBUMINE
     Dosage: 4 MG, UNK
  8. CIPLA-INDAPAMIDE [Suspect]
     Active Substance: INDAPAMIDE
     Dosage: 2.5 MG, UNK
  9. FOLIC ACID. [Suspect]
     Active Substance: FOLIC ACID
     Dosage: 5 MG, UNK

REACTIONS (2)
  - Nosocomial infection [Fatal]
  - Mental disorder [Unknown]
